FAERS Safety Report 5936294-0 (Version None)
Quarter: 2008Q4

REPORT INFORMATION
  Report Type: 
  Country: None (occurrence: None)
  Receive Date: 20081030
  Receipt Date: 20081020
  Transmission Date: 20090506
  Serious: Yes (Other)
  Sender: FDA-Public Use
  Company Number: US-AVENTIS-200817114US

PATIENT
  Sex: Male

DRUGS (4)
  1. LOVENOX [Suspect]
     Route: 058
     Dates: start: 20081015
  2. PERCOCET [Suspect]
     Dosage: DOSE: 325/10 MG Q4H
     Dates: start: 20081001, end: 20081020
  3. COUMADIN [Concomitant]
     Dates: start: 20081015
  4. LEVOTHYROXINE SODIUM [Concomitant]
     Indication: HYPOTHYROIDISM
     Dosage: DOSE: UNK
     Dates: end: 20081011

REACTIONS (3)
  - CONFUSIONAL STATE [None]
  - INSOMNIA [None]
  - SUICIDAL IDEATION [None]
